FAERS Safety Report 14797627 (Version 1)
Quarter: 2018Q2

REPORT INFORMATION
  Report Type: Spontaneous
  Country: FR (occurrence: FR)
  Receive Date: 20180424
  Receipt Date: 20180424
  Transmission Date: 20180711
  Serious: Yes (Other)
  Sender: FDA-Public Use
  Company Number: FR-MERCK KGAA-2046342

PATIENT
  Sex: Female

DRUGS (1)
  1. NOVOTHYROX [Suspect]
     Active Substance: LEVOTHYROXINE SODIUM
     Indication: PRODUCT USED FOR UNKNOWN INDICATION

REACTIONS (19)
  - Chest pain [None]
  - Loss of personal independence in daily activities [None]
  - Migraine [None]
  - Blood pressure decreased [None]
  - Pain in extremity [None]
  - Stress [None]
  - Diarrhoea [None]
  - Vertigo [None]
  - Asthenia [None]
  - Paraesthesia [None]
  - Tremor [None]
  - Nausea [None]
  - Headache [None]
  - Loss of consciousness [None]
  - Arthralgia [None]
  - Fatigue [None]
  - Nervousness [None]
  - Anxiety [None]
  - Pyrexia [None]
